FAERS Safety Report 6216294-6 (Version None)
Quarter: 2009Q2

REPORT INFORMATION
  Report Type: 
  Country: None (occurrence: None)
  Receive Date: 20090605
  Receipt Date: 20090529
  Transmission Date: 20091009
  Serious: Yes (Death)
  Sender: FDA-Public Use
  Company Number: JP-EISAI INC.-E3810-02860-SPO-JP

PATIENT
  Age: 68 Year
  Sex: Male

DRUGS (18)
  1. PARIET (RABEPRAZOLE) [Suspect]
     Dosage: UNKNOWN
     Route: 048
     Dates: start: 20090313, end: 20090318
  2. GASMOTIN [Suspect]
     Route: 048
     Dates: start: 20090313, end: 20090318
  3. WARFARIN [Suspect]
     Indication: ATRIAL FIBRILLATION
     Route: 048
     Dates: end: 20090318
  4. NU-LUTAN [Concomitant]
     Route: 065
  5. LUPRAC [Concomitant]
     Route: 065
  6. HALFDIGOXIN [Concomitant]
     Route: 065
  7. ZYLORIC [Concomitant]
     Route: 065
  8. AMARYL [Concomitant]
     Route: 065
  9. UNIPHYL LA [Concomitant]
     Route: 065
  10. ZETIA [Concomitant]
     Route: 065
  11. RENIVACE [Concomitant]
     Route: 065
  12. BASEN OD [Concomitant]
     Route: 065
  13. ITOROL [Concomitant]
     Route: 065
  14. SOLYUGEN G [Concomitant]
     Route: 065
  15. KN-1 [Concomitant]
     Route: 065
  16. RIMEFA 3B [Concomitant]
     Route: 065
  17. KN-4 [Concomitant]
     Route: 065
  18. ALINAMIN-F [Concomitant]
     Route: 065

REACTIONS (3)
  - HYPERKALAEMIA [None]
  - JAUNDICE [None]
  - LIVER FUNCTION TEST ABNORMAL [None]
